FAERS Safety Report 7481127-7 (Version None)
Quarter: 2011Q2

REPORT INFORMATION
  Report Type: 
  Country: None (occurrence: None)
  Receive Date: 20110516
  Receipt Date: 20110512
  Transmission Date: 20111010
  Serious: Yes (Other)
  Sender: FDA-Public Use
  Company Number: RS-GENZYME-FLUD-1001154

PATIENT

DRUGS (17)
  1. THYMOGLOBULIN [Suspect]
     Indication: STEM CELL TRANSPLANT
  2. BUSULFAN [Suspect]
     Indication: HAEMATOLOGICAL MALIGNANCY
     Dosage: UNK
     Route: 065
  3. URSODIOL [Concomitant]
     Indication: PROPHYLAXIS
     Dosage: DAY +1 QDX30 MINIMUM
  4. THIOTEPA [Suspect]
     Indication: HAEMATOLOGICAL MALIGNANCY
     Dosage: 10 MG/KG, QD
     Route: 065
  5. THIOTEPA [Suspect]
     Indication: STEM CELL TRANSPLANT
  6. ANALGESICS [Concomitant]
     Indication: ANALGESIC INTERVENTION SUPPORTIVE THERAPY
  7. FLUDARA [Suspect]
     Indication: STEM CELL TRANSPLANT
  8. THYMOGLOBULIN [Suspect]
     Indication: HAEMATOLOGICAL MALIGNANCY
     Dosage: 400 MG/M2, QDX3
     Route: 065
  9. CYCLOPHOSPHAMIDE [Suspect]
     Indication: HAEMATOLOGICAL MALIGNANCY
     Dosage: UNK
     Route: 065
  10. MELPHALAN HYDROCHLORIDE [Suspect]
     Indication: STEM CELL TRANSPLANT
  11. ACYCLOVIR [Concomitant]
     Indication: PROPHYLAXIS
     Dosage: UNK
     Route: 048
  12. FLUDARA [Suspect]
     Indication: HAEMATOLOGICAL MALIGNANCY
     Dosage: 25 MG/M2, QDX5
     Route: 065
  13. BUSULFAN [Suspect]
     Indication: STEM CELL TRANSPLANT
  14. MELPHALAN HYDROCHLORIDE [Suspect]
     Indication: HAEMATOLOGICAL MALIGNANCY
     Dosage: UNK
     Route: 065
  15. CYCLOPHOSPHAMIDE [Suspect]
     Indication: STEM CELL TRANSPLANT
  16. FLUCONAZOLE [Concomitant]
     Indication: PROPHYLAXIS
     Dosage: UNK
     Route: 048
  17. DIURETICS [Concomitant]
     Indication: DIURETIC THERAPY

REACTIONS (1)
  - VENOOCCLUSIVE DISEASE [None]
